FAERS Safety Report 8690142 (Version 2)
Quarter: 2012Q4

REPORT INFORMATION
  Report Type: 
  Country: US (occurrence: US)
  Receive Date: 20120727
  Receipt Date: 20121102
  Transmission Date: 20130627
  Serious: No
  Sender: FDA-Public Use
  Company Number: US-ASTRAZENECA-2012SE13668

PATIENT
  Age: 27 Year
  Sex: Male

DRUGS (1)
  1. SEROQUEL XR [Suspect]
     Indication: MAJOR DEPRESSION
     Route: 048

REACTIONS (3)
  - Impaired work ability [Unknown]
  - Drug withdrawal syndrome [Unknown]
  - Drug dose omission [Unknown]
